FAERS Safety Report 25441277 (Version 2)
Quarter: 2025Q3

REPORT INFORMATION
  Report Type: Spontaneous
  Country: EU (occurrence: EU)
  Receive Date: 20250616
  Receipt Date: 20250701
  Transmission Date: 20251021
  Serious: Yes (Hospitalization, Other)
  Sender: EXELIXIS
  Company Number: EU-IPSEN Group, Research and Development-2025-13468

PATIENT
  Age: 84 Year
  Sex: Male

DRUGS (1)
  1. CABOMETYX [Suspect]
     Active Substance: CABOZANTINIB S-MALATE
     Indication: Product used for unknown indication
     Route: 048
     Dates: start: 20250424, end: 20250521

REACTIONS (2)
  - Hepatic failure [Not Recovered/Not Resolved]
  - Hepatitis cholestatic [Not Recovered/Not Resolved]

NARRATIVE: CASE EVENT DATE: 20250520
